FAERS Safety Report 4639980-8 (Version None)
Quarter: 2005Q2

REPORT INFORMATION
  Report Type: 
  Country: None (occurrence: None)
  Receive Date: 20050415
  Receipt Date: 20050415
  Transmission Date: 20051028
  Serious: Yes (Life-Threatening, Hospitalization)
  Sender: FDA-Public Use
  Company Number: None

PATIENT
  Age: 34 Year
  Sex: Female
  Weight: 99.7913 kg

DRUGS (1)
  1. ALLOPURINOL 100MG TAB [Suspect]
     Indication: GOUT
     Dates: start: 20041115, end: 20041216

REACTIONS (7)
  - DRUG HYPERSENSITIVITY [None]
  - DRY SKIN [None]
  - EPISTAXIS [None]
  - HEPATIC FAILURE [None]
  - INFLUENZA [None]
  - MALAISE [None]
  - RENAL FAILURE [None]
